FAERS Safety Report 12843604 (Version 1)
Quarter: 2016Q4

REPORT INFORMATION
  Report Type: Spontaneous
  Country: US (occurrence: US)
  Receive Date: 20161012
  Receipt Date: 20161012
  Transmission Date: 20170207
  Serious: Yes (Other)
  Sender: FDA-Public Use
  Company Number: None

PATIENT
  Age: 51 Year
  Sex: Female

DRUGS (5)
  1. ATENOLOL. [Suspect]
     Active Substance: ATENOLOL
     Indication: HYPERTENSION
     Dosage: ?          QUANTITY:1 TABLET(S);?
     Route: 048
  2. METOPROL TAR [Concomitant]
  3. MULTI VITAMINS FOR WOMEN OVER 50 [Concomitant]
  4. ATENOLOL. [Suspect]
     Active Substance: ATENOLOL
     Indication: TACHYCARDIA
     Dosage: ?          QUANTITY:1 TABLET(S);?
     Route: 048
  5. BIRTH CONTROL [Concomitant]
     Active Substance: UNSPECIFIED INGREDIENT

REACTIONS (3)
  - Intraocular pressure increased [None]
  - Vision blurred [None]
  - Hypersensitivity [None]
